FAERS Safety Report 11148015 (Version 1)
Quarter: 2015Q2

REPORT INFORMATION
  Report Type: Spontaneous
  Country: US (occurrence: US)
  Receive Date: 20150529
  Receipt Date: 20150529
  Transmission Date: 20150821
  Serious: Yes (Hospitalization)
  Sender: FDA-Public Use
  Company Number: US-BEH-2015051421

PATIENT
  Age: 1 Year
  Sex: Female
  Weight: 9 kg

DRUGS (14)
  1. PRIVIGEN [Suspect]
     Active Substance: HUMAN IMMUNOGLOBULIN G
     Indication: HYPOGAMMAGLOBULINAEMIA
     Dosage: 10 G VIALS
     Route: 042
     Dates: start: 20150513
  2. ACETAMINOPHEN. [Concomitant]
     Active Substance: ACETAMINOPHEN
     Dosage: 120 MG AS DIRECTED
     Route: 048
  3. SULFACETAMIDE SODIUM. [Concomitant]
     Active Substance: SULFACETAMIDE SODIUM
     Dosage: AS DIRECTED
     Route: 048
  4. RANITIDINE [Concomitant]
     Active Substance: RANITIDINE\RANITIDINE HYDROCHLORIDE
     Route: 048
  5. PROGRAF [Concomitant]
     Active Substance: TACROLIMUS\TACROLIMUS ANHYDROUS
     Route: 048
  6. STERILE WATER [Concomitant]
     Active Substance: WATER
     Dosage: 1 DOSE AS DIRECTED
     Route: 042
  7. LIDOCAINE. [Concomitant]
     Active Substance: LIDOCAINE
     Dosage: 4% PRIOR TO INFUSION
     Route: 061
  8. SOLUTIONS FOR PARENTERAL NUTRITION [Concomitant]
     Active Substance: AMINO ACIDS\DEXTROSE\ELECTROLYTES NOS
     Dosage: 1 LITRE EVERY 12 HOURS (35-20-5MEQ) VIAL
     Route: 042
  9. NYSTATIN. [Concomitant]
     Active Substance: NYSTATIN
     Dosage: 1 TABLE SPOON TWICE DAILY
     Route: 048
  10. LOVENOX [Concomitant]
     Active Substance: ENOXAPARIN SODIUM
     Route: 058
  11. SODIUM CHLORIDE. [Concomitant]
     Active Substance: SODIUM CHLORIDE
     Dosage: 0.9% AS DIRECTED
     Route: 042
  12. DIPHENHYDRAMINE [Concomitant]
     Active Substance: DIPHENHYDRAMINE
     Dosage: 12.5 MG AS DIRECTED
     Route: 048
  13. EPIPEN [Concomitant]
     Active Substance: EPINEPHRINE
     Indication: ANAPHYLACTIC REACTION
     Route: 030
  14. REMICADE [Concomitant]
     Active Substance: INFLIXIMAB
     Route: 048

REACTIONS (3)
  - Feeling abnormal [Unknown]
  - Vomiting [Unknown]
  - Pyrexia [Unknown]

NARRATIVE: CASE EVENT DATE: 20150513
